FAERS Safety Report 23861229 (Version 1)
Quarter: 2024Q2

REPORT INFORMATION
  Report Type: Report from Study
  Country: US (occurrence: US)
  Receive Date: 20240516
  Receipt Date: 20240516
  Transmission Date: 20240716
  Serious: Yes (Other)
  Sender: FDA-Public Use
  Company Number: US-ARGENX-2023-ARGX-US003376

PATIENT

DRUGS (1)
  1. VYVGART [Suspect]
     Active Substance: EFGARTIGIMOD ALFA-FCAB
     Indication: Product used for unknown indication
     Dosage: UNK
     Route: 042

REACTIONS (16)
  - Diplegia [Unknown]
  - Therapeutic product ineffective [Unknown]
  - Nausea [Recovered/Resolved]
  - Hypersomnia [Unknown]
  - Dyspnoea [Unknown]
  - Dry mouth [Unknown]
  - Abdominal pain upper [Unknown]
  - Hypersomnia [Unknown]
  - Asthenia [Unknown]
  - Fatigue [Unknown]
  - Fatigue [Unknown]
  - Muscular weakness [Unknown]
  - Fatigue [Recovering/Resolving]
  - Gastroenteritis viral [Unknown]
  - Illness [Unknown]
  - Fatigue [Unknown]

NARRATIVE: CASE EVENT DATE: 20230928
